FAERS Safety Report 7371386-3 (Version None)
Quarter: 2011Q1

REPORT INFORMATION
  Report Type: 
  Country: None (occurrence: None)
  Receive Date: 20110321
  Receipt Date: 20110321
  Transmission Date: 20110831
  Serious: Yes (Hospitalization)
  Sender: FDA-Public Use
  Company Number: None

PATIENT
  Age: 35 Year
  Sex: Male
  Weight: 60.5 kg

DRUGS (3)
  1. INVANZ [Suspect]
     Indication: EVIDENCE BASED TREATMENT
     Dosage: 1GM Q24H IV BOLUS
     Route: 040
     Dates: start: 20110311, end: 20110314
  2. INVANZ [Suspect]
     Indication: ANTIBIOTIC THERAPY
     Dosage: 1GM Q24H IV BOLUS
     Route: 040
     Dates: start: 20110311, end: 20110314
  3. PROGRAF [Suspect]
     Indication: IMMUNOSUPPRESSANT DRUG THERAPY
     Dosage: 2MG BID PO
     Route: 048
     Dates: start: 20110313, end: 20110313

REACTIONS (5)
  - ACTINOMYCES TEST POSITIVE [None]
  - CONVULSION [None]
  - NUCLEAR MAGNETIC RESONANCE IMAGING BRAIN ABNORMAL [None]
  - PYREXIA [None]
  - STAPHYLOCOCCUS TEST POSITIVE [None]
